FAERS Safety Report 12158180 (Version 1)
Quarter: 2016Q1

REPORT INFORMATION
  Report Type: Spontaneous
  Country: US (occurrence: US)
  Receive Date: 20160308
  Receipt Date: 20160308
  Transmission Date: 20160526
  Serious: No
  Sender: FDA-Public Use
  Company Number: US-JNJFOC-20150103376

PATIENT
  Age: 75 Year
  Sex: Male
  Weight: 111 kg

DRUGS (12)
  1. LIPITOR [Concomitant]
     Active Substance: ATORVASTATIN CALCIUM
  2. ALLOPURINOL. [Concomitant]
     Active Substance: ALLOPURINOL
  3. IMBRUVICA [Suspect]
     Active Substance: IBRUTINIB
     Indication: MANTLE CELL LYMPHOMA
     Route: 048
     Dates: start: 20141110
  4. BENICAR [Concomitant]
     Active Substance: OLMESARTAN MEDOXOMIL
  5. DIOVAN [Concomitant]
     Active Substance: VALSARTAN
  6. MULTIVITAMINS [Concomitant]
     Active Substance: VITAMINS
  7. POTASSIUM CHLORIDE. [Concomitant]
     Active Substance: POTASSIUM CHLORIDE
  8. ASPIRIN. [Concomitant]
     Active Substance: ASPIRIN
  9. MUPIROCIN. [Suspect]
     Active Substance: MUPIROCIN
     Indication: INFECTION
     Route: 061
     Dates: start: 20141213
  10. ATENOLOL. [Concomitant]
     Active Substance: ATENOLOL
  11. PREDNISONE. [Concomitant]
     Active Substance: PREDNISONE
  12. FUROSEMIDE. [Concomitant]
     Active Substance: FUROSEMIDE

REACTIONS (2)
  - Toxic skin eruption [Not Recovered/Not Resolved]
  - Purpura non-thrombocytopenic [Not Recovered/Not Resolved]

NARRATIVE: CASE EVENT DATE: 20141215
